FAERS Safety Report 6450946-8 (Version None)
Quarter: 2009Q4

REPORT INFORMATION
  Report Type: 
  Country: None (occurrence: None)
  Receive Date: 20091123
  Receipt Date: 20091117
  Transmission Date: 20100525
  Serious: Yes (Death)
  Sender: FDA-Public Use
  Company Number: A0818174A

PATIENT
  Age: 87 Year
  Sex: Male
  Weight: 63.6 kg

DRUGS (1)
  1. AVANDIA [Suspect]
     Indication: DIABETES MELLITUS
     Dosage: 8MG PER DAY
     Route: 048

REACTIONS (6)
  - BLEEDING VARICOSE VEIN [None]
  - CONDITION AGGRAVATED [None]
  - LIVER DISORDER [None]
  - METASTATIC NEOPLASM [None]
  - PLEURAL EFFUSION [None]
  - PORTAL VEIN THROMBOSIS [None]
